FAERS Safety Report 5131498-1 (Version None)
Quarter: 2006Q4

REPORT INFORMATION
  Report Type: 
  Country: None (occurrence: None)
  Receive Date: 20061020
  Receipt Date: 20061012
  Transmission Date: 20070319
  Serious: Yes (Hospitalization)
  Sender: FDA-Public Use
  Company Number: US-MERCK-0610USA09195

PATIENT
  Age: 58 Year
  Sex: Female

DRUGS (4)
  1. EMEND [Suspect]
     Indication: PROPHYLAXIS OF NAUSEA AND VOMITING
     Route: 048
     Dates: start: 20060926, end: 20060926
  2. EMEND [Suspect]
     Route: 048
     Dates: start: 20060927, end: 20060928
  3. FLUOROURACIL [Concomitant]
     Indication: COLON CANCER
     Route: 065
  4. LEUCOVORIN CALCIUM [Concomitant]
     Indication: COLON CANCER
     Route: 065

REACTIONS (2)
  - GASTROENTERITIS [None]
  - INTESTINAL HAEMORRHAGE [None]
